FAERS Safety Report 8805846 (Version 1)
Quarter: 2012Q4

REPORT INFORMATION
  Report Type: Spontaneous
  Country: DE (occurrence: None)
  Receive Date: 20120917
  Receipt Date: 20120917
  Transmission Date: 20130627
  Serious: Yes (Hospitalization)
  Sender: FDA-Public Use
  Company Number: 2012HGS-003895

PATIENT
  Age: 38 Year
  Sex: Female

DRUGS (11)
  1. BENLYSTA [Suspect]
     Dates: start: 201204, end: 201205
  2. BENLYSTA [Suspect]
     Dates: start: 201205, end: 201205
  3. METHOTREXATE [Concomitant]
  4. HYDROXYCHLOROQUINE [Concomitant]
  5. PREDNISONE [Concomitant]
  6. PANTOPRAZOLE [Concomitant]
  7. FOLIC ACID [Concomitant]
  8. METOCLOPRAMIDE [Concomitant]
  9. CALCIUM WITH VITAMIN D (LEKOVIT CA) (COLECALCIFEROL, CALCIUM CARBONATE) [Concomitant]
  10. PREDNICARBATE [Suspect]
  11. RAMIPRIL [Concomitant]

REACTIONS (6)
  - Infection [None]
  - Cough [None]
  - Infusion related reaction [None]
  - Spleen disorder [None]
  - Haemangioma [None]
  - Haematuria [None]
